FAERS Safety Report 5037369-3 (Version None)
Quarter: 2006Q2

REPORT INFORMATION
  Report Type: 
  Country: None (occurrence: None)
  Receive Date: 20060605
  Receipt Date: 20060502
  Transmission Date: 20061013
  Serious: No
  Sender: FDA-Public Use
  Company Number: IND-AE-06-SAN-020

PATIENT
  Sex: Male

DRUGS (1)
  1. SANCTURA [Suspect]
     Indication: HYPERTONIC BLADDER
     Dosage: 20 MG - QD - ORAL
     Route: 048
     Dates: start: 20050401

REACTIONS (1)
  - DRUG INEFFECTIVE [None]
